FAERS Safety Report 5941356-8 (Version None)
Quarter: 2008Q4

REPORT INFORMATION
  Report Type: 
  Country: None (occurrence: None)
  Receive Date: 20081103
  Receipt Date: 20071221
  Transmission Date: 20090506
  Serious: Yes (Hospitalization)
  Sender: FDA-Public Use
  Company Number: 2007-01281FE

PATIENT
  Age: 59 Year
  Sex: Male

DRUGS (6)
  1. MINIRIN [Suspect]
     Indication: URINARY INCONTINENCE
     Dosage: 20 MCG
     Dates: start: 20070730, end: 20070802
  2. BACLOFEN [Concomitant]
  3. METFORMIN HCL [Concomitant]
  4. TRIMEBUTINE MALEATE [Concomitant]
  5. ZOPICLONE [Concomitant]
  6. NITROFURANTOIN [Concomitant]

REACTIONS (3)
  - DISTURBANCE IN ATTENTION [None]
  - HYPONATRAEMIA [None]
  - URINARY TRACT INFECTION [None]
